FAERS Safety Report 9160524 (Version 1)
Quarter: 2013Q1

REPORT INFORMATION
  Report Type: Spontaneous
  Country: US (occurrence: US)
  Receive Date: 20130313
  Receipt Date: 20130313
  Transmission Date: 20140127
  Serious: No
  Sender: FDA-Public Use
  Company Number: US-ABBOTT-13P-163-1048095-00

PATIENT
  Sex: Male

DRUGS (5)
  1. DEPAKOTE [Suspect]
     Indication: BIPOLAR DISORDER
     Dates: start: 2012, end: 201212
  2. DEPAKOTE [Suspect]
     Dates: start: 201204
  3. DEPAKOTE [Suspect]
     Dates: start: 201212
  4. LITHIUM [Concomitant]
     Indication: BIPOLAR DISORDER
  5. SYNTHROID [Concomitant]
     Indication: HYPOTHYROIDISM

REACTIONS (1)
  - Hypoacusis [Unknown]
